FAERS Safety Report 16048656 (Version 1)
Quarter: 2019Q1

REPORT INFORMATION
  Report Type: Spontaneous
  Country: US (occurrence: US)
  Receive Date: 20190307
  Receipt Date: 20190307
  Transmission Date: 20190418
  Serious: No
  Sender: FDA-Public Use
  Company Number: US-SA-2019SA060739

PATIENT
  Age: 63 Year
  Sex: Female

DRUGS (3)
  1. PREDNISONE. [Concomitant]
     Active Substance: PREDNISONE
     Indication: ARTHRALGIA
     Dosage: UNK UNK, PRN
  2. DUPIXENT [Suspect]
     Active Substance: DUPILUMAB
     Indication: DERMATITIS ATOPIC
     Dosage: UNK, QOW
     Dates: start: 201812
  3. METHOTREXATE. [Concomitant]
     Active Substance: METHOTREXATE
     Dosage: UNK

REACTIONS (13)
  - Dermatitis atopic [Unknown]
  - Dry skin [Unknown]
  - Rhinorrhoea [Unknown]
  - Pain of skin [Unknown]
  - Pruritus [Unknown]
  - Eye pain [Unknown]
  - Skin exfoliation [Unknown]
  - Skin burning sensation [Unknown]
  - Pyrexia [Unknown]
  - Erythema [Unknown]
  - Nasopharyngitis [Unknown]
  - Body temperature abnormal [Unknown]
  - Oral herpes [Recovered/Resolved]

NARRATIVE: CASE EVENT DATE: 201812
